FAERS Safety Report 6402691-2 (Version None)
Quarter: 2009Q4

REPORT INFORMATION
  Report Type: 
  Country: None (occurrence: None)
  Receive Date: 20091009
  Receipt Date: 20091001
  Transmission Date: 20100525
  Serious: Yes (Hospitalization)
  Sender: FDA-Public Use
  Company Number: ADR36772009

PATIENT
  Age: 59 Year

DRUGS (1)
  1. ALENDRONATE SODIUM [Suspect]
     Indication: OSTEOPOROSIS
     Dosage: 70 MG - 1/1 WEEK, ORAL
     Route: 048
     Dates: start: 20010101, end: 20080101

REACTIONS (1)
  - FEMUR FRACTURE [None]
